FAERS Safety Report 4547539-6 (Version None)
Quarter: 2005Q1

REPORT INFORMATION
  Report Type: 
  Country: None (occurrence: None)
  Receive Date: 20050107
  Receipt Date: 20050105
  Transmission Date: 20050727
  Serious: Yes (Other)
  Sender: FDA-Public Use
  Company Number: PHBS2005CH00535

PATIENT
  Age: 63 Year
  Sex: Female

DRUGS (11)
  1. SANDIMMUNE [Suspect]
     Dosage: 350 MG/D
     Route: 048
     Dates: start: 20041018, end: 20041208
  2. VALTREX [Suspect]
     Dosage: 1 G/D
     Route: 048
     Dates: end: 20041210
  3. BACTRIM [Suspect]
     Dosage: 800/600 MG QW3
     Dates: end: 20041210
  4. VFEND [Suspect]
     Dosage: 400 MG/D
     Dates: start: 20040511, end: 20041210
  5. ELTROXIN [Concomitant]
     Route: 048
     Dates: end: 20041210
  6. SEROPRAM [Concomitant]
     Dosage: 20 MG/D
     Dates: start: 20040511, end: 20041210
  7. NEXIUM [Concomitant]
     Dosage: 20 MG/D
     Route: 048
     Dates: end: 20041210
  8. VALDECOXIB [Concomitant]
     Dosage: 40 MG/D
     Dates: start: 20041029, end: 20041210
  9. SOLU-MEDROL [Concomitant]
     Dates: start: 20041207
  10. IMMUNE GLOBULIN INTRAVENOUS (HUMAN) [Concomitant]
     Dates: start: 20041203
  11. BETRAX [Concomitant]
     Dosage: UNK, UNK
     Dates: start: 20041101, end: 20041210

REACTIONS (12)
  - AREFLEXIA [None]
  - BLOOD CHOLESTEROL INCREASED [None]
  - BLOOD MAGNESIUM DECREASED [None]
  - CHROMATOPSIA [None]
  - COORDINATION ABNORMAL [None]
  - DRUG LEVEL INCREASED [None]
  - GENERAL PHYSICAL HEALTH DETERIORATION [None]
  - MALAISE [None]
  - MUSCULAR WEAKNESS [None]
  - NEUROPATHY PERIPHERAL [None]
  - SENSORY DISTURBANCE [None]
  - VISUAL DISTURBANCE [None]
